FAERS Safety Report 4313344-9 (Version None)
Quarter: 2004Q1

REPORT INFORMATION
  Report Type: 
  Country: None (occurrence: None)
  Receive Date: 20040304
  Receipt Date: 20040217
  Transmission Date: 20041129
  Serious: Yes (Hospitalization)
  Sender: FDA-Public Use
  Company Number: DSA_24023_2004

PATIENT
  Age: 81 Year
  Sex: Female

DRUGS (4)
  1. ENALAPRIL MALEATE AND HYDROCHLOROTHIAZIDE [Suspect]
     Indication: HYPERTENSION
     Dosage: 1 TAB Q DAY PO
     Route: 048
  2. ROFECOXIB [Suspect]
     Indication: LOCALISED OSTEOARTHRITIS
     Dosage: 25 MG Q DAY PO
     Route: 048
     Dates: start: 20020715, end: 20030509
  3. AMLODIPINE MALEATE [Suspect]
     Indication: HYPERTENSION
     Dates: start: 20030331, end: 20030515
  4. CHONDROITIN SULFATE SODIUM [Concomitant]

REACTIONS (4)
  - PAIN [None]
  - PAIN IN EXTREMITY [None]
  - PURPURA [None]
  - SKIN ULCER [None]
